FAERS Safety Report 13332531 (Version 1)
Quarter: 2017Q1

REPORT INFORMATION
  Report Type: Spontaneous
  Country: DE (occurrence: US)
  Receive Date: 20170314
  Receipt Date: 20170314
  Transmission Date: 20170428
  Serious: Yes (Hospitalization)
  Sender: FDA-Public Use
  Company Number: None

PATIENT
  Sex: Female
  Weight: 142 kg

DRUGS (12)
  1. CITALOPRAM [Concomitant]
     Active Substance: CITALOPRAM HYDROBROMIDE
  2. TILICLIN [Concomitant]
  3. VELPATASVIR [Suspect]
     Active Substance: VELPATASVIR
     Indication: HEPATITIS C
     Route: 048
     Dates: start: 20161207, end: 20170301
  4. CARVEDILOL. [Concomitant]
     Active Substance: CARVEDILOL
  5. L-THYROXIN [Concomitant]
     Active Substance: LEVOTHYROXINE SODIUM
  6. SOFOSBUVIR 400MG [Suspect]
     Active Substance: SOFOSBUVIR
     Indication: HEPATITIS C
     Route: 048
     Dates: start: 20161207, end: 20170301
  7. RIBAVIRIN. [Suspect]
     Active Substance: RIBAVIRIN
     Route: 048
     Dates: start: 20161207, end: 20170301
  8. COLECALCIFEROL [Concomitant]
     Active Substance: CHOLECALCIFEROL
  9. TORSEMIDE. [Concomitant]
     Active Substance: TORSEMIDE
  10. VALSARTAN. [Concomitant]
     Active Substance: VALSARTAN
  11. BECLOMETHASONE DIPROPIONATE [Concomitant]
     Active Substance: BECLOMETHASONE DIPROPIONATE
  12. SPIRONOLACTONE. [Concomitant]
     Active Substance: SPIRONOLACTONE

REACTIONS (3)
  - Abdominal pain [None]
  - Constipation [None]
  - Pyrexia [None]

NARRATIVE: CASE EVENT DATE: 20170202
